FAERS Safety Report 5075356-X (Version None)
Quarter: 2006Q3

REPORT INFORMATION
  Report Type: 
  Country: None (occurrence: None)
  Receive Date: 20060804
  Receipt Date: 20060724
  Transmission Date: 20061208
  Serious: Yes (Hospitalization)
  Sender: FDA-Public Use
  Company Number: 2006091578

PATIENT
  Age: 25 Year
  Sex: Male

DRUGS (2)
  1. MAGNEX (SULBACTAM, CEFOPERAZONE) [Suspect]
     Indication: JOINT DISLOCATION
     Dosage: 2 GRAM (1 GRAM,2 IN 1 D), INTRAVENOUS
     Route: 042
     Dates: start: 20060706, end: 20060707
  2. MAGNEX (SULBACTAM, CEFOPERAZONE) [Suspect]
     Indication: OPEN FRACTURE
     Dosage: 2 GRAM (1 GRAM,2 IN 1 D), INTRAVENOUS
     Route: 042
     Dates: start: 20060706, end: 20060707

REACTIONS (3)
  - INTERNATIONAL NORMALISED RATIO INCREASED [None]
  - PROTHROMBIN TIME PROLONGED [None]
  - THROMBOCYTOPENIA [None]
